FAERS Safety Report 6698537-8 (Version None)
Quarter: 2010Q2

REPORT INFORMATION
  Report Type: 
  Country: None (occurrence: None)
  Receive Date: 20100427
  Receipt Date: 20100423
  Transmission Date: 20101027
  Serious: Yes (Hospitalization)
  Sender: FDA-Public Use
  Company Number: GXKR2009DE00603

PATIENT
  Age: 86 Year
  Sex: Female
  Weight: 60 kg

DRUGS (8)
  1. RAMIPRIL+HYDROCHLOROTHIAZIDE (NGX) [Suspect]
     Indication: HYPERTENSION
     Dosage: 5 MG, QD
     Route: 048
     Dates: end: 20080814
  2. AMLODIPINE [Suspect]
     Indication: HYPERTENSION
     Dosage: 5 MG, BID
     Route: 048
  3. TORSEMIDE [Suspect]
     Indication: HYPERTENSION
     Dosage: 5 MG, QD
     Route: 048
  4. ASPIRIN [Concomitant]
     Indication: CARDIOVASCULAR EVENT PROPHYLAXIS
     Dosage: 100 MG, UNK
     Route: 048
  5. CELEBREX [Concomitant]
     Indication: ANALGESIC THERAPY
     Dosage: 200 MG, BID
     Route: 048
     Dates: end: 20080815
  6. DUSODRIL [Concomitant]
     Indication: DEMENTIA
     Dosage: 100 MG, QD
     Route: 048
     Dates: end: 20080815
  7. FENTANYL [Concomitant]
     Indication: ANALGESIC THERAPY
     Route: 062
  8. MOVICOL [Concomitant]
     Indication: CONSTIPATION
     Dosage: 13.81 G, BID
     Route: 048

REACTIONS (1)
  - SYNCOPE [None]
